FAERS Safety Report 23319959 (Version 1)
Quarter: 2023Q4

REPORT INFORMATION
  Report Type: Spontaneous
  Country: US (occurrence: US)
  Receive Date: 20231220
  Receipt Date: 20231220
  Transmission Date: 20240110
  Serious: No
  Sender: FDA-Public Use
  Company Number: US-ELI_LILLY_AND_COMPANY-US202312009518

PATIENT
  Sex: Female

DRUGS (1)
  1. OLUMIANT [Suspect]
     Active Substance: BARICITINIB
     Indication: Alopecia
     Dosage: 2 MG, UNKNOWN
     Route: 065

REACTIONS (4)
  - Ear infection [Unknown]
  - Insomnia [Unknown]
  - Decreased immune responsiveness [Unknown]
  - Respiratory tract infection [Unknown]
